FAERS Safety Report 7597288-5 (Version None)
Quarter: 2011Q3

REPORT INFORMATION
  Report Type: 
  Country: None (occurrence: None)
  Receive Date: 20110708
  Receipt Date: 20110308
  Transmission Date: 20111222
  Serious: No
  Sender: FDA-Public Use
  Company Number: US-GLAXOSMITHKLINE-A0917160A

PATIENT
  Age: 40 Year
  Sex: Male

DRUGS (1)
  1. FLOVENT [Suspect]
     Indication: OESOPHAGITIS
     Dosage: 1PUFF PER DAY
     Route: 055
     Dates: start: 20110131, end: 20110201

REACTIONS (2)
  - THROAT IRRITATION [None]
  - HYPERSENSITIVITY [None]
